FAERS Safety Report 6269646-2 (Version None)
Quarter: 2009Q3

REPORT INFORMATION
  Report Type: 
  Country: None (occurrence: None)
  Receive Date: 20090714
  Receipt Date: 20090707
  Transmission Date: 20100115
  Serious: No
  Sender: FDA-Public Use
  Company Number: 2009002724

PATIENT
  Sex: Female

DRUGS (9)
  1. FENTORA [Suspect]
     Indication: ARTHRALGIA
     Dosage: (800 MCG), BU
     Route: 002
     Dates: end: 20081201
  2. FENTORA [Suspect]
     Indication: BACK PAIN
     Dosage: (800 MCG), BU
     Route: 002
     Dates: end: 20081201
  3. FENTORA [Suspect]
     Indication: OSTEOPOROSIS
     Dosage: (800 MCG), BU
     Route: 002
     Dates: end: 20081201
  4. OTFC (ORAL TRANSMUCOSAL FENTANUL CITRATE) (GENERIC ACTIQ)(FENTANYL CIT [Suspect]
     Indication: ARTHRALGIA
     Dosage: 9600 MCG (1600 MCG, 6 IN 1 D), BU
     Route: 002
     Dates: start: 20040101
  5. OTFC (ORAL TRANSMUCOSAL FENTANUL CITRATE) (GENERIC ACTIQ)(FENTANYL CIT [Suspect]
     Indication: BACK PAIN
     Dosage: 9600 MCG (1600 MCG, 6 IN 1 D), BU
     Route: 002
     Dates: start: 20040101
  6. OTFC (ORAL TRANSMUCOSAL FENTANUL CITRATE) (GENERIC ACTIQ)(FENTANYL CIT [Suspect]
     Indication: OSTEOPOROSIS
     Dosage: 9600 MCG (1600 MCG, 6 IN 1 D), BU
     Route: 002
     Dates: start: 20040101
  7. FENTANYL PUMP (FENTANYL) [Concomitant]
  8. MELOXICAM [Concomitant]
  9. MUSCLE RELAXANT (MUSCLE RELAXANTS) [Concomitant]

REACTIONS (1)
  - DRUG PRESCRIBING ERROR [None]
